FAERS Safety Report 10968450 (Version 1)
Quarter: 2015Q1

REPORT INFORMATION
  Report Type: Spontaneous
  Country: US (occurrence: US)
  Receive Date: 20150330
  Receipt Date: 20150330
  Transmission Date: 20150721
  Serious: No
  Sender: FDA-Public Use
  Company Number: US-BAUSCH-SYM-2013-13307

PATIENT
  Sex: Female

DRUGS (1)
  1. XENAZINE [Suspect]
     Active Substance: TETRABENAZINE
     Indication: HUNTINGTON^S DISEASE
     Dosage: 1 TABLET, 3X DAILY
     Route: 048
     Dates: start: 20131006, end: 201312

REACTIONS (6)
  - Hypersomnia [Unknown]
  - Tremor [Unknown]
  - Balance disorder [Unknown]
  - Salivary hypersecretion [Unknown]
  - Irritability [Unknown]
  - Drug ineffective [Unknown]
